FAERS Safety Report 9263222 (Version 7)
Quarter: 2014Q1

REPORT INFORMATION
  Report Type: Spontaneous
  Country: US (occurrence: US)
  Receive Date: 20130430
  Receipt Date: 20140219
  Transmission Date: 20141002
  Serious: Yes (Other)
  Sender: FDA-Public Use
  Company Number: US-PFIZER INC-2013132728

PATIENT
  Age: 54 Year
  Sex: Female

DRUGS (6)
  1. LIPITOR [Suspect]
     Indication: CARDIOVASCULAR EVENT PROPHYLAXIS
     Dosage: 40 MG, 1X/DAY
     Route: 048
     Dates: start: 2002
  2. LIPITOR [Suspect]
     Indication: HYPERLIPIDAEMIA
     Dosage: 10 MG, DAILY
     Route: 048
     Dates: start: 20030324
  3. HYDROCHLOROTHIAZIDE [Concomitant]
     Indication: BLOOD PRESSURE
     Dosage: 10-12.5MG
     Dates: start: 200704
  4. LODRANE 24D [Concomitant]
     Indication: HYPERSENSITIVITY
     Dosage: UNK
     Dates: start: 200705, end: 201110
  5. BACTROBAN [Concomitant]
     Indication: SKIN DISORDER
     Dosage: 2% , UNK
     Dates: start: 200708, end: 201101
  6. DESOXIMETASONE [Concomitant]
     Indication: SKIN DISORDER
     Dosage: 0.05%-0.25% UNK
     Dates: start: 200912

REACTIONS (1)
  - Type 2 diabetes mellitus [Unknown]
